FAERS Safety Report 9424505 (Version 2)
Quarter: 2014Q1

REPORT INFORMATION
  Report Type: Spontaneous
  Country: FR (occurrence: None)
  Receive Date: 20130725
  Receipt Date: 20140204
  Transmission Date: 20141002
  Serious: Yes (Hospitalization)
  Sender: FDA-Public Use
  Company Number: CLINIGEN-003049

PATIENT
  Age: 63 Year
  Sex: Male

DRUGS (19)
  1. FOSCAVIR [Suspect]
     Indication: CYTOMEGALOVIRUS INFECTION
     Dates: start: 20130616, end: 20130622
  2. CERTICAN [Suspect]
     Indication: ORGAN TRANSPLANT
     Route: 048
  3. CACIT [Concomitant]
  4. FOSAMAX [Concomitant]
  5. FOSAMAX [Concomitant]
  6. INEXIUM [Concomitant]
  7. ATROVENT [Concomitant]
  8. CARDENSIEL [Concomitant]
  9. IMODIUM [Concomitant]
  10. DEXAFREE [Concomitant]
  11. IMOVANE [Concomitant]
  12. NEUPOGEN [Concomitant]
  13. PERFALGAN [Concomitant]
  14. PERFALGAN [Concomitant]
  15. PRIMPERAN [Concomitant]
  16. SOLUPRED [Concomitant]
  17. DIFFU K [Concomitant]
  18. TAVANIC [Concomitant]
  19. PROGRAF [Suspect]
     Indication: ORGAN TRANSPLANT
     Route: 048

REACTIONS (3)
  - Haemolytic anaemia [None]
  - Thrombotic microangiopathy [None]
  - Condition aggravated [None]
